FAERS Safety Report 11499842 (Version 1)
Quarter: 2015Q3

REPORT INFORMATION
  Report Type: Spontaneous
  Country: US (occurrence: None)
  Receive Date: 20150911
  Receipt Date: 20150911
  Transmission Date: 20151125
  Serious: Yes (Hospitalization, Disabling)
  Sender: FDA-Public Use
  Company Number: None

PATIENT
  Age: 1 Month
  Sex: Male
  Weight: 75.5 kg

DRUGS (4)
  1. TRAZODONE (DESYREL) [Concomitant]
  2. CLONIDINE (CATAPRES) [Concomitant]
  3. VIVITROL [Suspect]
     Active Substance: NALTREXONE
     Indication: SUBSTANCE ABUSE
     Dosage: Q4W
     Dates: start: 20150904
  4. HYDROXYZINE (ATARAX) [Concomitant]

REACTIONS (7)
  - Abasia [None]
  - Injection site swelling [None]
  - Injection site pain [None]
  - Musculoskeletal pain [None]
  - Screaming [None]
  - Rhabdomyolysis [None]
  - Injection site erythema [None]

NARRATIVE: CASE EVENT DATE: 20150904
